FAERS Safety Report 18213194 (Version 1)
Quarter: 2020Q3

REPORT INFORMATION
  Report Type: Spontaneous
  Country: US (occurrence: US)
  Receive Date: 20200830
  Receipt Date: 20200830
  Transmission Date: 20201103
  Serious: Yes (Other)
  Sender: FDA-Public Use
  Company Number: None

PATIENT
  Age: 18 Year
  Sex: Female

DRUGS (2)
  1. NEXPLANON [Suspect]
     Active Substance: ETONOGESTREL
     Indication: CONTRACEPTION
     Dates: start: 20171103, end: 20181215
  2. NEXPLANON [Suspect]
     Active Substance: ETONOGESTREL
     Indication: MENSTRUATION IRREGULAR
     Dates: start: 20171103, end: 20181215

REACTIONS (9)
  - Condition aggravated [None]
  - Menorrhagia [None]
  - Premenstrual syndrome [None]
  - Insomnia [None]
  - Anxiety [None]
  - Attention deficit hyperactivity disorder [None]
  - Dysmenorrhoea [None]
  - Depression [None]
  - Hypoaesthesia [None]

NARRATIVE: CASE EVENT DATE: 20180101
